FAERS Safety Report 7357959-2 (Version None)
Quarter: 2011Q1

REPORT INFORMATION
  Report Type: 
  Country: None (occurrence: None)
  Receive Date: 20110317
  Receipt Date: 20110308
  Transmission Date: 20110831
  Serious: Yes (Hospitalization)
  Sender: FDA-Public Use
  Company Number: US-SANOFI-AVENTIS-2011SA010932

PATIENT
  Age: 77 Year
  Sex: Male
  Weight: 112 kg

DRUGS (6)
  1. NEXIUM [Concomitant]
     Dates: start: 20030101
  2. CRESTOR [Concomitant]
     Dates: start: 20030101
  3. DABIGATRAN ETEXILATE [Suspect]
     Indication: ANTICOAGULANT THERAPY
     Route: 065
     Dates: start: 20110101
  4. METOPROLOL [Concomitant]
     Dates: start: 20030101
  5. MULTAQ [Suspect]
     Indication: ATRIAL FIBRILLATION
     Route: 048
     Dates: start: 20100701
  6. VALSARTAN [Concomitant]
     Dates: start: 20030101

REACTIONS (2)
  - DIVERTICULITIS [None]
  - DIARRHOEA [None]
